FAERS Safety Report 23337499 (Version 1)
Quarter: 2023Q4

REPORT INFORMATION
  Report Type: Spontaneous
  Country: US (occurrence: US)
  Receive Date: 20231226
  Receipt Date: 20231226
  Transmission Date: 20240110
  Serious: Yes (Hospitalization, Other)
  Sender: FDA-Public Use
  Company Number: US-TEVA-VS-3136303

PATIENT

DRUGS (1)
  1. COPAXONE [Suspect]
     Active Substance: GLATIRAMER ACETATE
     Indication: Multiple sclerosis
     Route: 065
     Dates: start: 2010

REACTIONS (5)
  - Paralysis [Unknown]
  - Drug ineffective [Unknown]
  - COVID-19 [Unknown]
  - Gait inability [Unknown]
  - Multiple sclerosis [Unknown]
